FAERS Safety Report 19295051 (Version 2)
Quarter: 2024Q1

REPORT INFORMATION
  Report Type: Spontaneous
  Country: CA (occurrence: CA)
  Receive Date: 20210524
  Receipt Date: 20240325
  Transmission Date: 20240410
  Serious: Yes (Other)
  Sender: FDA-Public Use
  Company Number: CA-BAUSCH-BL-2021-017123

PATIENT
  Age: 63 Year
  Sex: Female
  Weight: 79 kg

DRUGS (33)
  1. ALBUTEROL [Suspect]
     Active Substance: ALBUTEROL
     Indication: Asthma
     Route: 065
  2. ALBUTEROL [Suspect]
     Active Substance: ALBUTEROL
     Route: 065
  3. ALBUTEROL [Suspect]
     Active Substance: ALBUTEROL
     Indication: Asthma
     Route: 065
  4. ADVAIR HFA [Suspect]
     Active Substance: FLUTICASONE PROPIONATE\SALMETEROL XINAFOATE
     Indication: Asthma
     Route: 065
  5. ADVAIR HFA [Suspect]
     Active Substance: FLUTICASONE PROPIONATE\SALMETEROL XINAFOATE
     Route: 065
  6. ALVESCO [Suspect]
     Active Substance: CICLESONIDE
     Indication: Product used for unknown indication
     Dosage: AEROSOL METERED DOSE
     Route: 065
  7. ALVESCO [Suspect]
     Active Substance: CICLESONIDE
     Route: 065
  8. ALVESCO [Suspect]
     Active Substance: CICLESONIDE
     Route: 065
  9. ALVESCO [Suspect]
     Active Substance: CICLESONIDE
     Route: 065
  10. ALVESCO [Suspect]
     Active Substance: CICLESONIDE
     Route: 065
  11. ALVESCO [Suspect]
     Active Substance: CICLESONIDE
     Route: 065
  12. ALVESCO [Suspect]
     Active Substance: CICLESONIDE
     Dosage: AEROSOL METERED DOSE
     Route: 065
  13. AZITHROMYCIN [Suspect]
     Active Substance: AZITHROMYCIN
     Indication: Product used for unknown indication
     Route: 065
  14. AZITHROMYCIN [Suspect]
     Active Substance: AZITHROMYCIN
     Dosage: PMS-AZITHROMYCIN
     Route: 065
  15. COENZYME Q10 [Suspect]
     Active Substance: DIETARY SUPPLEMENT\UBIDECARENONE
     Indication: Product used for unknown indication
     Route: 065
  16. COENZYME Q10 [Suspect]
     Active Substance: DIETARY SUPPLEMENT\UBIDECARENONE
     Dosage: UBIDECARENONE
     Route: 065
  17. DOXYCYCLINE [Suspect]
     Active Substance: DOXYCYCLINE
     Indication: Product used for unknown indication
     Route: 065
  18. FLOVENT [Suspect]
     Active Substance: FLUTICASONE PROPIONATE
     Indication: Product used for unknown indication
     Route: 065
  19. GLUTATHIONE [Suspect]
     Active Substance: GLUTATHIONE
     Indication: Product used for unknown indication
     Route: 065
  20. IRON [Suspect]
     Active Substance: IRON
     Indication: Product used for unknown indication
     Route: 065
  21. OMEGA-3-ACID ETHYL ESTERS [Suspect]
     Active Substance: OMEGA-3-ACID ETHYL ESTERS
     Indication: Product used for unknown indication
     Route: 065
  22. PANCRELIPASE [Suspect]
     Active Substance: PANCRELIPASE
     Indication: Product used for unknown indication
     Route: 065
  23. PANCRELIPASE [Suspect]
     Active Substance: PANCRELIPASE
     Route: 065
  24. PREDNISONE [Suspect]
     Active Substance: PREDNISONE
     Indication: Asthma
     Route: 065
  25. PREVACID [Suspect]
     Active Substance: LANSOPRAZOLE
     Indication: Product used for unknown indication
     Route: 065
  26. SIMVASTATIN [Suspect]
     Active Substance: SIMVASTATIN
     Indication: Product used for unknown indication
     Route: 065
  27. UMECLIDINIUM BROMIDE\VILANTEROL TRIFENATATE [Suspect]
     Active Substance: UMECLIDINIUM BROMIDE\VILANTEROL TRIFENATATE
     Indication: Asthma
     Route: 065
  28. UMECLIDINIUM BROMIDE\VILANTEROL TRIFENATATE [Suspect]
     Active Substance: UMECLIDINIUM BROMIDE\VILANTEROL TRIFENATATE
     Route: 065
  29. UMECLIDINIUM BROMIDE\VILANTEROL TRIFENATATE [Suspect]
     Active Substance: UMECLIDINIUM BROMIDE\VILANTEROL TRIFENATATE
     Route: 065
  30. VITAMIN B12 [Suspect]
     Active Substance: CYANOCOBALAMIN
     Indication: Product used for unknown indication
     Route: 065
  31. VITAMIN B12 [Suspect]
     Active Substance: CYANOCOBALAMIN
     Dosage: CYANOCOBALAMIN
     Route: 065
  32. VITAMIN D [Suspect]
     Active Substance: VITAMIN D NOS
     Indication: Product used for unknown indication
     Route: 065
  33. VITAMIN D [Suspect]
     Active Substance: VITAMIN D NOS
     Dosage: VITAMIN D (JAMIESON)
     Route: 065

REACTIONS (26)
  - Asthma [Unknown]
  - Asthma [Unknown]
  - Full blood count abnormal [Unknown]
  - Condition aggravated [Unknown]
  - Dyspnoea [Unknown]
  - Eczema [Unknown]
  - Eosinophil count increased [Unknown]
  - Eosinophilic pneumonia chronic [Unknown]
  - Loss of personal independence in daily activities [Unknown]
  - Lung opacity [Unknown]
  - Malaise [Unknown]
  - Obstructive airways disorder [Unknown]
  - Pain [Unknown]
  - Pneumonia bacterial [Unknown]
  - Pulmonary mass [Unknown]
  - Sleep disorder due to a general medical condition [Unknown]
  - Sputum discoloured [Unknown]
  - Stomatitis [Unknown]
  - Throat clearing [Unknown]
  - Cough [Unknown]
  - Wheezing [Unknown]
  - Chest pain [Unknown]
  - Lung disorder [Unknown]
  - Dysphonia [Unknown]
  - Therapeutic product effect incomplete [Unknown]
  - Drug ineffective [Unknown]
